FAERS Safety Report 23347782 (Version 1)
Quarter: 2023Q4

REPORT INFORMATION
  Report Type: Spontaneous
  Country: ID (occurrence: ID)
  Receive Date: 20231228
  Receipt Date: 20231228
  Transmission Date: 20240110
  Serious: Yes (Life-Threatening)
  Sender: FDA-Public Use
  Company Number: ID-PFIZER INC-PV202300205745

PATIENT
  Age: 36 Year
  Sex: Female
  Weight: 50 kg

DRUGS (4)
  1. MEROPENEM [Suspect]
     Active Substance: MEROPENEM
     Dosage: 1 G, 3X/DAY (1G/8H)
     Route: 042
  2. SODIUM LACTATE [Suspect]
     Active Substance: SODIUM LACTATE
     Dosage: 100 ML, DAILY (1600 CC/24 HOURS)
     Route: 042
  3. VANCOMYCIN [Suspect]
     Active Substance: VANCOMYCIN
     Dosage: 1 G, 2X/DAY (1G/12HRS)
     Route: 042
  4. AMIKACIN [Suspect]
     Active Substance: AMIKACIN
     Dosage: UNK

REACTIONS (1)
  - Drug ineffective [Unknown]
